FAERS Safety Report 15769847 (Version 6)
Quarter: 2020Q3

REPORT INFORMATION
  Report Type: Report from Study
  Country: FR (occurrence: FR)
  Receive Date: 20181228
  Receipt Date: 20200406
  Transmission Date: 20201104
  Serious: Yes (Hospitalization)
  Sender: FDA-Public Use
  Company Number: FR-ACTELION-A-CH2018-181442

PATIENT
  Age: 73 Year
  Sex: Male
  Weight: 83 kg

DRUGS (31)
  1. VENTAVIS [Concomitant]
     Active Substance: ILOPROST
     Dosage: UNK
     Route: 055
     Dates: start: 201803
  2. GALVUS [Concomitant]
     Active Substance: VILDAGLIPTIN
  3. TIMOFEROL [Concomitant]
     Active Substance: ASCORBIC ACID\FERROUS SULFATE
     Indication: ANAEMIA
     Dosage: 1 CAP, 2/DAY
     Route: 048
  4. NASONEX [Concomitant]
     Active Substance: MOMETASONE FUROATE
     Indication: RHINITIS
     Dosage: 1 PUFF, BID
     Route: 045
  5. OXYGEN. [Concomitant]
     Active Substance: OXYGEN
  6. INSULIN [Concomitant]
     Active Substance: INSULIN NOS
  7. ALDACTONE [Concomitant]
     Active Substance: SPIRONOLACTONE
  8. PREGABALINE [Concomitant]
     Active Substance: PREGABALIN
  9. LASILIX [Concomitant]
     Active Substance: FUROSEMIDE
     Indication: PULMONARY ARTERIAL HYPERTENSION
     Dosage: 125 MG, QD
     Route: 048
     Dates: start: 20180731
  10. TAHOR [Concomitant]
     Active Substance: ATORVASTATIN CALCIUM
     Indication: HYPERCHOLESTEROLAEMIA
     Dosage: 80 MG, OD
     Route: 048
  11. METFORMINE [Concomitant]
     Active Substance: METFORMIN HYDROCHLORIDE
  12. DIFFU K [Concomitant]
     Active Substance: POTASSIUM CHLORIDE
     Indication: HYPOKALAEMIA
     Dosage: 600 MG, BID
     Route: 048
  13. LASILIX [Concomitant]
     Active Substance: FUROSEMIDE
     Dosage: UNK
     Route: 042
  14. NOVONORM [Concomitant]
     Active Substance: REPAGLINIDE
     Indication: DIABETES MELLITUS
     Dosage: 2.5 MG, TID
     Route: 048
  15. ILOPROST. [Concomitant]
     Active Substance: ILOPROST
     Indication: PULMONARY ARTERIAL HYPERTENSION
     Dosage: 13 H DURATION
     Route: 048
  16. CLOPIDOGREL [Concomitant]
     Active Substance: CLOPIDOGREL BISULFATE
     Indication: PERIPHERAL ARTERIAL OCCLUSIVE DISEASE
     Dosage: 75 MG, OD
     Route: 048
  17. ZYMAD [Concomitant]
     Active Substance: CHOLECALCIFEROL
     Indication: VITAMIN D DEFICIENCY
     Dosage: 80000
     Route: 048
  18. REMODULIN [Suspect]
     Active Substance: TREPROSTINIL
     Indication: PULMONARY ARTERIAL HYPERTENSION
     Dosage: UNK
     Route: 042
  19. PANTOPRAZOLE [Concomitant]
     Active Substance: PANTOPRAZOLE
  20. ATORVASTATIN [Concomitant]
     Active Substance: ATORVASTATIN
  21. ADCIRCA [Concomitant]
     Active Substance: TADALAFIL
     Dosage: UNK
     Dates: start: 201511
  22. EUCREAS [Concomitant]
     Active Substance: METFORMIN HYDROCHLORIDE\VILDAGLIPTIN
     Indication: DIABETES MELLITUS
     Dosage: 50 MG/1000 MG, 2/DAY
     Route: 048
  23. NOVORAPID [Concomitant]
     Active Substance: INSULIN ASPART
  24. MACITENTAN [Suspect]
     Active Substance: MACITENTAN
     Indication: PULMONARY ARTERIAL HYPERTENSION
     Dosage: 10 MG, QD
     Route: 048
     Dates: start: 20151126
  25. REMODULIN [Suspect]
     Active Substance: TREPROSTINIL
     Dosage: UNK
     Route: 058
     Dates: start: 20190313
  26. ADCIRCA [Concomitant]
     Active Substance: TADALAFIL
     Indication: PULMONARY ARTERIAL HYPERTENSION
     Dosage: 40 MG, QD
     Route: 048
     Dates: start: 20151126
  27. INEXIUM [Concomitant]
     Active Substance: ESOMEPRAZOLE
     Indication: PROPHYLAXIS AGAINST GASTROINTESTINAL ULCER
     Dosage: 20 MG, QD
     Route: 048
  28. DOLIPRANE [Concomitant]
     Active Substance: ACETAMINOPHEN
     Indication: PAIN
     Dosage: 1000 MG, PRN
     Route: 048
  29. FUMAFER [Concomitant]
     Active Substance: FERROUS FUMARATE
  30. ABASAGLAR [Concomitant]
     Active Substance: INSULIN GLARGINE
  31. SILODYX [Concomitant]
     Active Substance: SILODOSIN

REACTIONS (23)
  - Blood bilirubin increased [Recovered/Resolved]
  - Dyspnoea exertional [Recovered/Resolved]
  - Dehydration [Unknown]
  - Venoocclusive disease [Unknown]
  - Dyspnoea [Recovered/Resolved]
  - Condition aggravated [Recovered/Resolved]
  - Device malfunction [Recovered/Resolved]
  - Chest pain [Recovered/Resolved]
  - Device connection issue [Recovered/Resolved]
  - Right ventricular failure [Recovered/Resolved]
  - Cyanosis [Recovered/Resolved]
  - Gamma-glutamyltransferase increased [Recovered/Resolved]
  - Hyponatraemia [Unknown]
  - Injection site pain [Unknown]
  - Cardiac failure [Recovered/Resolved]
  - Blood alkaline phosphatase increased [Recovered/Resolved]
  - Hepatojugular reflux [Recovered/Resolved]
  - Hypokalaemia [Unknown]
  - Pulmonary arterial hypertension [Recovered/Resolved]
  - Transfusion [Unknown]
  - Device breakage [Recovered/Resolved]
  - Asthenia [Recovered/Resolved]
  - Anaemia [Recovered/Resolved]

NARRATIVE: CASE EVENT DATE: 20181031
